FAERS Safety Report 25734817 (Version 1)
Quarter: 2025Q3

REPORT INFORMATION
  Report Type: Spontaneous
  Country: EU (occurrence: EU)
  Receive Date: 20250828
  Receipt Date: 20250828
  Transmission Date: 20251021
  Serious: Yes (Other)
  Sender: TEVA
  Company Number: EU-TEVA-VS-3354320

PATIENT
  Age: 65 Year
  Sex: Male

DRUGS (2)
  1. RAMIPRIL [Suspect]
     Active Substance: RAMIPRIL
     Indication: Hypertension
     Dosage: FREQUENCY : DIVIDED MORNING AND EVENING
     Route: 048
     Dates: start: 202503
  2. RAMIPRIL [Suspect]
     Active Substance: RAMIPRIL
     Indication: Hypertension
     Route: 065

REACTIONS (3)
  - Cardiac failure [Unknown]
  - Hypotension [Recovering/Resolving]
  - Dizziness [Recovered/Resolved]
